FAERS Safety Report 8190201-1 (Version None)
Quarter: 2012Q1

REPORT INFORMATION
  Report Type: 
  Country: None (occurrence: None)
  Receive Date: 20120307
  Receipt Date: 20120306
  Transmission Date: 20120608
  Serious: No
  Sender: FDA-Public Use
  Company Number: US-PFIZER INC-2012060135

PATIENT
  Sex: Female
  Weight: 56.689 kg

DRUGS (2)
  1. TRIAZOLAM [Concomitant]
     Indication: SLEEP DISORDER
     Dosage: ONE AND A HALF TABLET, 1X/DAY
  2. LIPITOR [Suspect]
     Indication: BLOOD CHOLESTEROL INCREASED
     Dosage: 10 MG, 1X/DAY
     Route: 048
     Dates: start: 20120305, end: 20120306

REACTIONS (1)
  - TINNITUS [None]
